FAERS Safety Report 7418611-8 (Version None)
Quarter: 2011Q2

REPORT INFORMATION
  Report Type: 
  Country: None (occurrence: None)
  Receive Date: 20110415
  Receipt Date: 20101029
  Transmission Date: 20111010
  Serious: Yes (Other)
  Sender: FDA-Public Use
  Company Number: US-BAYER-201022374NA

PATIENT
  Age: 33 Year
  Sex: Female
  Weight: 77.098 kg

DRUGS (5)
  1. YASMIN [Suspect]
     Dosage: UNK UNK, UNK
     Route: 048
     Dates: start: 20060728, end: 20080601
  2. EXCEDRIN (MIGRAINE) [Concomitant]
  3. CIPRO [Concomitant]
     Dosage: 500 MG, UNK
  4. DARVOCET [Concomitant]
     Indication: SCOLIOSIS
     Dosage: UNK
     Dates: start: 20050101, end: 20070101
  5. LORTAB [Concomitant]

REACTIONS (9)
  - GALLBLADDER DISORDER [None]
  - ABDOMINAL PAIN [None]
  - DIARRHOEA HAEMORRHAGIC [None]
  - BACK PAIN [None]
  - URINARY TRACT INFECTION [None]
  - CHOLELITHIASIS [None]
  - RENAL PAIN [None]
  - NAUSEA [None]
  - CHOLECYSTITIS [None]
